FAERS Safety Report 14085615 (Version 2)
Quarter: 2017Q4

REPORT INFORMATION
  Report Type: Report from Study
  Country: BR (occurrence: BR)
  Receive Date: 20171013
  Receipt Date: 20171127
  Transmission Date: 20180321
  Serious: Yes (Other)
  Sender: FDA-Public Use
  Company Number: BR-ELI_LILLY_AND_COMPANY-BR201710004712

PATIENT
  Age: 56 Year
  Sex: Male

DRUGS (2)
  1. CETUXIMAB. [Suspect]
     Active Substance: CETUXIMAB
     Dosage: 500 MG/M2, WEEKLY (1/W)
     Route: 042
     Dates: start: 201709
  2. CETUXIMAB. [Suspect]
     Active Substance: CETUXIMAB
     Indication: HEAD AND NECK CANCER METASTATIC
     Dosage: 800 MG/M2, SINGLE
     Route: 042
     Dates: start: 20170919, end: 20170919

REACTIONS (6)
  - Fatigue [Unknown]
  - Nausea [Unknown]
  - Off label use [Unknown]
  - Throat tightness [Unknown]
  - Dyspnoea [Unknown]
  - Asthenia [Unknown]

NARRATIVE: CASE EVENT DATE: 2017
